FAERS Safety Report 24308202 (Version 1)
Quarter: 2024Q3

REPORT INFORMATION
  Report Type: Spontaneous
  Country: US (occurrence: None)
  Receive Date: 20240911
  Receipt Date: 20240911
  Transmission Date: 20241017
  Serious: No
  Sender: Public
  Company Number: None

PATIENT
  Age: 28 Year
  Sex: Female
  Weight: 117.93 kg

DRUGS (1)
  1. HUMIRA [Suspect]
     Active Substance: ADALIMUMAB
     Indication: Psoriasis
     Dosage: OTHER FREQUENCY : ONDAY1,80ONDAY1540MGONCEADAY;?INJECT 160 MG SUBCUTANEOUSLY ON DAY 1 80 MG  ON DAY
     Route: 058
     Dates: start: 202408

REACTIONS (1)
  - Rectal abscess [None]
